FAERS Safety Report 14438201 (Version 1)
Quarter: 2018Q1

REPORT INFORMATION
  Report Type: Spontaneous
  Country: US (occurrence: US)
  Receive Date: 20180125
  Receipt Date: 20180125
  Transmission Date: 20180509
  Serious: No
  Sender: FDA-Public Use
  Company Number: US-PFIZER INC-2018028729

PATIENT
  Age: 19 Year
  Sex: Female

DRUGS (7)
  1. SILDENAFIL CITRATE. [Suspect]
     Active Substance: SILDENAFIL CITRATE
     Indication: PULMONARY HYPERTENSION
     Dosage: 20 MG, 3X/DAY (TID)
     Dates: start: 201611
  2. UPTRAVI [Suspect]
     Active Substance: SELEXIPAG
     Dosage: 800 UG, 2X/DAY (BID)
  3. UPTRAVI [Suspect]
     Active Substance: SELEXIPAG
     Indication: PULMONARY ARTERIAL HYPERTENSION
     Dosage: 600 UG, 2X/DAY (BID)
     Dates: start: 201712
  4. TYVASO [Suspect]
     Active Substance: TREPROSTINIL
     Indication: PULMONARY ARTERIAL HYPERTENSION
     Dosage: 18 UG, 3X/DAY (TID)
     Route: 055
  5. AMBRISENTAN [Suspect]
     Active Substance: AMBRISENTAN
     Indication: PULMONARY ARTERIAL HYPERTENSION
     Dosage: 10 MG, 1X/DAY
     Dates: start: 20120614
  6. TYVASO [Suspect]
     Active Substance: TREPROSTINIL
     Dosage: 54 UG, 4X/DAY (QID)
     Route: 055
     Dates: start: 20120706
  7. UPTRAVI [Suspect]
     Active Substance: SELEXIPAG
     Dosage: 1000 UG, 2X/DAY (BID)

REACTIONS (4)
  - Myalgia [Unknown]
  - Pain in jaw [Unknown]
  - Dizziness [Not Recovered/Not Resolved]
  - Flushing [Not Recovered/Not Resolved]

NARRATIVE: CASE EVENT DATE: 201712
